FAERS Safety Report 7410120-5 (Version None)
Quarter: 2011Q2

REPORT INFORMATION
  Report Type: 
  Country: None (occurrence: None)
  Receive Date: 20110412
  Receipt Date: 20110330
  Transmission Date: 20111010
  Serious: No
  Sender: FDA-Public Use
  Company Number: HU-ROCHE-767493

PATIENT

DRUGS (1)
  1. TOCILIZUMAB [Suspect]
     Indication: RHEUMATOID ARTHRITIS
     Route: 065

REACTIONS (10)
  - UPPER RESPIRATORY TRACT INFECTION [None]
  - LEUKOPENIA [None]
  - HEPATIC ENZYME INCREASED [None]
  - ASTHENIA [None]
  - MENORRHAGIA [None]
  - HYPERCHOLESTEROLAEMIA [None]
  - PNEUMONIA [None]
  - HERPES ZOSTER [None]
  - MALAISE [None]
  - KERATITIS [None]
